FAERS Safety Report 23033919 (Version 1)
Quarter: 2023Q4

REPORT INFORMATION
  Report Type: Spontaneous
  Country: US (occurrence: None)
  Receive Date: 20231005
  Receipt Date: 20231005
  Transmission Date: 20240109
  Serious: No
  Sender: FDA-Public Use
  Company Number: None

PATIENT
  Age: 78 Year
  Sex: Male

DRUGS (8)
  1. REPATHA [Suspect]
     Active Substance: EVOLOCUMAB
  2. ALLOPURINOL [Suspect]
     Active Substance: ALLOPURINOL
  3. AMLODIPINE BESYLATE [Suspect]
     Active Substance: AMLODIPINE BESYLATE
  4. COREG [Suspect]
     Active Substance: CARVEDILOL
  5. FLOMAX [Suspect]
     Active Substance: TAMSULOSIN HYDROCHLORIDE
  6. GABAPENTIN [Suspect]
     Active Substance: GABAPENTIN
  7. LINZESS [Suspect]
     Active Substance: LINACLOTIDE
  8. OMEPRAZOLE [Suspect]
     Active Substance: OMEPRAZOLE

REACTIONS (2)
  - Cardiac failure congestive [None]
  - Pneumonia [None]

NARRATIVE: CASE EVENT DATE: 20230926
